FAERS Safety Report 5385321-0 (Version None)
Quarter: 2007Q3

REPORT INFORMATION
  Report Type: 
  Country: None (occurrence: None)
  Receive Date: 20070709
  Receipt Date: 20070709
  Transmission Date: 20080115
  Serious: Yes (Hospitalization)
  Sender: FDA-Public Use
  Company Number: None

PATIENT
  Age: 75 Year
  Sex: Male
  Weight: 59.4212 kg

DRUGS (1)
  1. DIGOXIN [Suspect]
     Indication: ATRIAL FIBRILLATION
     Dosage: 0.25MG EVERY DAY PO
     Route: 048
     Dates: start: 20070527, end: 20070530

REACTIONS (2)
  - RENAL FAILURE [None]
  - THERAPEUTIC AGENT TOXICITY [None]
